FAERS Safety Report 19504842 (Version 1)
Quarter: 2021Q3

REPORT INFORMATION
  Report Type: Report from Study
  Country: IT (occurrence: IT)
  Receive Date: 20210708
  Receipt Date: 20210708
  Transmission Date: 20211014
  Serious: Yes (Other)
  Sender: FDA-Public Use
  Company Number: IT-TEVA-2021-IT-1930285

PATIENT
  Age: 19 Year
  Sex: Female

DRUGS (4)
  1. DIAZEPAM. [Suspect]
     Active Substance: DIAZEPAM
     Indication: AGITATION
     Dosage: 20DF
     Route: 048
     Dates: start: 20210618, end: 20210618
  2. RAMIPRIL. [Suspect]
     Active Substance: RAMIPRIL
     Indication: HYPERTENSION
     Dosage: 7.5MG
     Route: 048
     Dates: start: 20210618, end: 20210618
  3. ENANTYUM 25 MG COMPRESSE RIVESTITE CON FILM [Suspect]
     Active Substance: DEXKETOPROFEN TROMETAMOL
     Indication: PAIN
     Dosage: 112.5MG
     Route: 048
     Dates: start: 20210618, end: 20210618
  4. DELTACORTENE 5 MG COMPRESSE [Suspect]
     Active Substance: PREDNISONE
     Indication: PAIN
     Dosage: 50MG
     Route: 048
     Dates: start: 20210618, end: 20210618

REACTIONS (2)
  - Drug abuse [Recovering/Resolving]
  - Sopor [Recovering/Resolving]

NARRATIVE: CASE EVENT DATE: 20210618
